FAERS Safety Report 23379780 (Version 2)
Quarter: 2024Q1

REPORT INFORMATION
  Report Type: Report from Study
  Country: US (occurrence: US)
  Receive Date: 20240108
  Receipt Date: 20240220
  Transmission Date: 20240410
  Serious: Yes (Other)
  Sender: FDA-Public Use
  Company Number: US-ABBVIE-5574580

PATIENT
  Sex: Male

DRUGS (2)
  1. RINVOQ [Suspect]
     Active Substance: UPADACITINIB
     Indication: Psoriatic arthropathy
     Route: 048
     Dates: start: 2019
  2. PREDNISONE [Suspect]
     Active Substance: PREDNISONE
     Indication: Psoriatic arthropathy
     Dosage: HIGH DOSES
     Route: 065

REACTIONS (10)
  - Spinal compression fracture [Unknown]
  - Osteoarthritis [Unknown]
  - Psoriatic arthropathy [Not Recovered/Not Resolved]
  - Gait disturbance [Unknown]
  - Cataract [Not Recovered/Not Resolved]
  - Memory impairment [Unknown]
  - Bone density decreased [Unknown]
  - Pain [Not Recovered/Not Resolved]
  - Vertebral osteophyte [Unknown]
  - Lumbar spinal stenosis [Not Recovered/Not Resolved]
